FAERS Safety Report 5772075-9 (Version None)
Quarter: 2008Q2

REPORT INFORMATION
  Report Type: 
  Country: None (occurrence: None)
  Receive Date: 20080611
  Receipt Date: 20080526
  Transmission Date: 20081010
  Serious: Yes (Hospitalization)
  Sender: FDA-Public Use
  Company Number: 000#8#2008-00105

PATIENT
  Age: 83 Year
  Sex: Female

DRUGS (3)
  1. ALPROSTADIL [Suspect]
     Indication: SYSTEMIC SCLEROSIS
     Dosage: 6 NG/KG/MIN FOR 3 HOURS ON 5 CONSECUTIVE DAYS, THEN 1 - 2 INFUSIONS MONTHLY, TOTAL: 30
     Route: 041
  2. CALCIUM-CHANNELBLOCKERS [Concomitant]
  3. ASPRIN (ACETYLSALICYLIC ACID) [Concomitant]

REACTIONS (1)
  - MYOCARDIAL INFARCTION [None]
